FAERS Safety Report 9879117 (Version 2)
Quarter: 2014Q2

REPORT INFORMATION
  Report Type: Spontaneous
  Country: IT (occurrence: IT)
  Receive Date: 20140206
  Receipt Date: 20140407
  Transmission Date: 20141212
  Serious: Yes (Life-Threatening)
  Sender: FDA-Public Use
  Company Number: IT-B.I. PHARMACEUTICALS,INC./RIDGEFIELD-2014-BI-05329IT

PATIENT
  Age: 87 Year
  Sex: Male

DRUGS (6)
  1. PRADAXA [Suspect]
     Indication: PRODUCT USED FOR UNKNOWN INDICATION
     Dosage: 110 MG
     Route: 048
     Dates: start: 20131227, end: 20140127
  2. BISOPROLOL FUMARATE [Concomitant]
     Route: 065
  3. PANTOPRAZOLE [Concomitant]
     Route: 065
  4. ALDACTONE [Concomitant]
     Route: 065
  5. LASIX [Concomitant]
     Route: 065
  6. EUTIROX [Concomitant]
     Route: 065

REACTIONS (4)
  - Anaemia [Not Recovered/Not Resolved]
  - Splenic haemorrhage [Not Recovered/Not Resolved]
  - Post procedural haemorrhage [Not Recovered/Not Resolved]
  - Splenic injury [Not Recovered/Not Resolved]
